FAERS Safety Report 12471723 (Version 1)
Quarter: 2016Q2

REPORT INFORMATION
  Report Type: Spontaneous
  Country: US (occurrence: None)
  Receive Date: 20160615
  Receipt Date: 20160615
  Transmission Date: 20160815
  Serious: Yes (Hospitalization)
  Sender: FDA-Public Use
  Company Number: None

PATIENT
  Age: 35 Year
  Sex: Female
  Weight: 68.3 kg

DRUGS (11)
  1. FLECAINIDIDE [Suspect]
     Active Substance: FLECAINIDE
     Indication: ATRIAL FIBRILLATION
     Route: 048
  2. NOVOLOG [Concomitant]
     Active Substance: INSULIN ASPART
  3. FOLVITE [Concomitant]
     Active Substance: FOLIC ACID
  4. LEXAPRO [Suspect]
     Active Substance: ESCITALOPRAM OXALATE
     Indication: DEPRESSION
     Route: 048
  5. COENZYME Q10 [Concomitant]
     Active Substance: UBIDECARENONE
  6. COREG [Concomitant]
     Active Substance: CARVEDILOL
  7. CALCIU [Concomitant]
  8. LANTUS [Concomitant]
     Active Substance: INSULIN GLARGINE
  9. ZYRTEC [Concomitant]
     Active Substance: CETIRIZINE HYDROCHLORIDE
  10. TOVIAZ [Concomitant]
     Active Substance: FESOTERODINE FUMARATE
  11. TAMBICOR [Concomitant]

REACTIONS (5)
  - Condition aggravated [None]
  - Chest pain [None]
  - Electrocardiogram QT prolonged [None]
  - Dyspnoea [None]
  - Drug interaction [None]

NARRATIVE: CASE EVENT DATE: 20151230
